FAERS Safety Report 22268518 (Version 1)
Quarter: 2023Q2

REPORT INFORMATION
  Report Type: Spontaneous
  Country: MX (occurrence: None)
  Receive Date: 20230430
  Receipt Date: 20230430
  Transmission Date: 20230722
  Serious: Yes (Death, Other)
  Sender: FDA-Public Use
  Company Number: MX-ROCHE-3299035

PATIENT
  Age: 3 Year
  Sex: Female

DRUGS (1)
  1. CLONAZEPAM [Suspect]
     Active Substance: CLONAZEPAM
     Indication: Product used for unknown indication
     Route: 065

REACTIONS (4)
  - Intentional product misuse [Unknown]
  - Epistaxis [Fatal]
  - Asphyxia [Fatal]
  - Aspiration [Fatal]

NARRATIVE: CASE EVENT DATE: 20201117
